FAERS Safety Report 6369695-X (Version None)
Quarter: 2009Q3

REPORT INFORMATION
  Report Type: 
  Country: None (occurrence: None)
  Receive Date: 20090923
  Receipt Date: 20090910
  Transmission Date: 20100115
  Serious: Yes (Hospitalization, Other)
  Sender: FDA-Public Use
  Company Number: GB-PFIZER INC-2007025745

PATIENT
  Age: 16 Month

DRUGS (5)
  1. PHENYTOIN AND PHENYTOIN SODIUM [Suspect]
     Indication: CONVULSION
     Dosage: 9 MG, 1X/DAY
  2. LAMOTRIGINE [Suspect]
     Indication: CONVULSION
     Dosage: 75 MG, 2X/DAY
     Route: 048
  3. PHENOXYMETHYLPENICILLIN [Suspect]
  4. AUGMENTIN [Suspect]
     Indication: INFLUENZA
     Dosage: UNK
     Dates: start: 19960101
  5. FLUCONAZOLE [Concomitant]

REACTIONS (18)
  - ABNORMAL FAECES [None]
  - AUTISM [None]
  - CANDIDIASIS [None]
  - CONVULSION [None]
  - DIARRHOEA [None]
  - DRUG INEFFECTIVE [None]
  - EAR INFECTION [None]
  - EPISTAXIS [None]
  - GASTROINTESTINAL DISORDER [None]
  - LACTOSE INTOLERANCE [None]
  - PHARYNGEAL OEDEMA [None]
  - PHARYNGITIS [None]
  - RASH [None]
  - RHINITIS [None]
  - UPPER LIMB FRACTURE [None]
  - UPPER RESPIRATORY TRACT INFECTION [None]
  - URINARY RETENTION [None]
  - VOMITING PROJECTILE [None]
